FAERS Safety Report 6031728-8 (Version None)
Quarter: 2009Q1

REPORT INFORMATION
  Report Type: 
  Country: None (occurrence: None)
  Receive Date: 20090107
  Receipt Date: 20090107
  Transmission Date: 20090719
  Serious: Yes (Life-Threatening)
  Sender: FDA-Public Use
  Company Number: None

PATIENT
  Age: 83 Year
  Sex: Female
  Weight: 70.3075 kg

DRUGS (1)
  1. ENALAPRIL MALEATE [Suspect]
     Dosage: 10 MG 1X
     Dates: start: 20081029

REACTIONS (1)
  - BLOOD POTASSIUM INCREASED [None]
